FAERS Safety Report 18428563 (Version 1)
Quarter: 2020Q4

REPORT INFORMATION
  Report Type: Spontaneous
  Country: GB (occurrence: GB)
  Receive Date: 20201026
  Receipt Date: 20201026
  Transmission Date: 20210114
  Serious: Yes (Hospitalization)
  Sender: FDA-Public Use
  Company Number: GB-MYLANLABS-2020M1064624

PATIENT
  Sex: Male

DRUGS (1)
  1. CLOZARIL [Suspect]
     Active Substance: CLOZAPINE
     Indication: SCHIZOPHRENIA
     Dosage: 700 MILLIGRAM, QD
     Route: 048
     Dates: start: 20150114, end: 20200612

REACTIONS (4)
  - Malnutrition [Unknown]
  - Impaired self-care [Unknown]
  - Antipsychotic drug level increased [Recovering/Resolving]
  - Hospitalisation [Recovered/Resolved]
